FAERS Safety Report 9207018 (Version 1)
Quarter: 2013Q2

REPORT INFORMATION
  Report Type: Spontaneous
  Country: US (occurrence: None)
  Receive Date: 20130402
  Receipt Date: 20130402
  Transmission Date: 20140414
  Serious: Yes (Hospitalization, Other)
  Sender: FDA-Public Use
  Company Number: None

PATIENT
  Sex: Female
  Weight: 68 kg

DRUGS (1)
  1. J+J BABY OIL BODY WASH SHEA + COCOA BTTR [Suspect]
     Dosage: SQUIRT
     Route: 061

REACTIONS (2)
  - Fall [None]
  - Laceration [None]
